FAERS Safety Report 11859965 (Version 2)
Quarter: 2016Q1

REPORT INFORMATION
  Report Type: Spontaneous
  Country: US (occurrence: US)
  Receive Date: 20151222
  Receipt Date: 20160128
  Transmission Date: 20160526
  Serious: No
  Sender: FDA-Public Use
  Company Number: US-PFIZER INC-2015407756

PATIENT
  Age: 69 Year
  Sex: Female

DRUGS (2)
  1. IBRANCE [Suspect]
     Active Substance: PALBOCICLIB
     Indication: BREAST CANCER
     Dosage: 125 MG, CYCLIC (125 MG PO DAILY X 21 DAYS ON 7 DAYS OFF)
     Route: 048
     Dates: start: 20151113
  2. FEMARA [Concomitant]
     Active Substance: LETROZOLE
     Indication: BREAST CANCER
     Dosage: 2.5 MG, DAILY
     Dates: start: 201511

REACTIONS (4)
  - Chest pain [Unknown]
  - Pleural effusion [Unknown]
  - Chest discomfort [Recovered/Resolved]
  - Fatigue [Unknown]
